FAERS Safety Report 5888655-6 (Version None)
Quarter: 2008Q3

REPORT INFORMATION
  Report Type: 
  Country: None (occurrence: None)
  Receive Date: 20080916
  Receipt Date: 20080909
  Transmission Date: 20090109
  Serious: Yes (Other)
  Sender: FDA-Public Use
  Company Number: 2008-03137

PATIENT
  Age: 50 Year
  Sex: Female

DRUGS (2)
  1. VELCADE [Suspect]
     Indication: MULTIPLE MYELOMA
  2. THALIDOMIDE(THALIDOMIDE) THALIDOMIDE(THALIDOMIDE) [Concomitant]
     Indication: MULTIPLE MYELOMA

REACTIONS (3)
  - CEREBRAL ISCHAEMIA [None]
  - HEMIANOPIA HOMONYMOUS [None]
  - RETINAL ARTERY THROMBOSIS [None]
